FAERS Safety Report 7349054-3 (Version None)
Quarter: 2011Q1

REPORT INFORMATION
  Report Type: 
  Country: None (occurrence: None)
  Receive Date: 20110303
  Receipt Date: 20110218
  Transmission Date: 20110831
  Serious: No
  Sender: FDA-Public Use
  Company Number: 2011-00069

PATIENT
  Age: 60 Year
  Sex: Female
  Weight: 86.1834 kg

DRUGS (3)
  1. PREDNISONE [Concomitant]
  2. ZANTAC [Concomitant]
  3. ZICAM COLD REMEDY NASAL GEL [Suspect]
     Dosage: ONE APPLICATION

REACTIONS (2)
  - ANOSMIA [None]
  - AGEUSIA [None]
